FAERS Safety Report 8589336-0 (Version None)
Quarter: 2012Q3

REPORT INFORMATION
  Report Type: 
  Country: None (occurrence: None)
  Receive Date: 20120813
  Receipt Date: 20120806
  Transmission Date: 20120928
  Serious: Yes (Other)
  Sender: FDA-Public Use
  Company Number: NG-ASTRAZENECA-2012SE55523

PATIENT
  Age: 53 Year
  Sex: Female
  Weight: 165 kg

DRUGS (3)
  1. FENTANYL [Suspect]
     Indication: SPINAL ANAESTHESIA
     Route: 037
  2. DICLOFENAC [Concomitant]
     Indication: ANALGESIC THERAPY
  3. BUPIVACAINE HCL [Suspect]
     Indication: SPINAL ANAESTHESIA
     Route: 037

REACTIONS (2)
  - SLEEP APNOEA SYNDROME [None]
  - RESPIRATORY DEPRESSION [None]
